FAERS Safety Report 17830856 (Version 1)
Quarter: 2020Q2

REPORT INFORMATION
  Report Type: Spontaneous
  Country: AU (occurrence: AU)
  Receive Date: 20200527
  Receipt Date: 20200527
  Transmission Date: 20200714
  Serious: Yes (Hospitalization, Other)
  Sender: FDA-Public Use
  Company Number: AU-ASTRAZENECA-2020SE67658

PATIENT
  Age: 70 Year
  Sex: Female

DRUGS (12)
  1. OMEPRAZOLE. [Suspect]
     Active Substance: OMEPRAZOLE
     Dosage: 20 MG IN THE MORNING
     Route: 048
  2. OLANZAPINE. [Suspect]
     Active Substance: OLANZAPINE
     Indication: SCHIZOPHRENIA
     Route: 065
     Dates: start: 2004, end: 2018
  3. SERTRALINE [Suspect]
     Active Substance: SERTRALINE HYDROCHLORIDE
     Route: 065
  4. COLECALCIFEROL [Suspect]
     Active Substance: CHOLECALCIFEROL
     Dosage: 1000 UNITS IN THE MORNING.
     Route: 065
  5. HYDROZOLE [Suspect]
     Active Substance: CLOTRIMAZOLE\HYDROCORTISONE
     Dosage: APPLIED TWICE DAILY
     Route: 065
  6. DENCORUB [TROLAMINE SALICYLATE] [Suspect]
     Active Substance: TROLAMINE SALICYLATE
     Dosage: APPLIED WHEN NECESSARY
     Route: 065
  7. AMOXICILLIN. [Suspect]
     Active Substance: AMOXICILLIN
     Indication: SPLENECTOMY
     Dosage: 250MG IN THE MORNING FOR A DURATION OF 3 YEARS AND AT A DOSAGE OF 1500MG STAT AT THE FIRST SIGN O...
     Route: 065
  8. LOPERAMIDE [Suspect]
     Active Substance: LOPERAMIDE
     Dosage: 2MG WHEN NECESSARY
     Route: 065
  9. CLOZAPINE. [Suspect]
     Active Substance: CLOZAPINE
     Indication: SCHIZOPHRENIA
     Dosage: UNKNOWN
     Route: 065
     Dates: start: 2004, end: 2018
  10. PANADOL [Suspect]
     Active Substance: ACETAMINOPHEN
     Indication: OSTEOARTHRITIS
     Dosage: 2 TABLETS THREE TIMES DAILY REGULARLY AND 1000MG FOUR TIMES DAILY WHEN NECESSARY
     Route: 065
  11. VITAMIN B12 [Suspect]
     Active Substance: CYANOCOBALAMIN
     Dosage: 100MCG IN THE MORNING
     Route: 065
  12. IRON SUPPLEMENT [Suspect]
     Active Substance: IRON
     Indication: IRON DEFICIENCY ANAEMIA
     Dosage: UNKNOWN`
     Route: 065

REACTIONS (21)
  - Aggression [Unknown]
  - Schizophrenia [Unknown]
  - Delirium [Unknown]
  - Neutrophilia [Unknown]
  - Balance disorder [Unknown]
  - Pain [Unknown]
  - Anal incontinence [Unknown]
  - Dehydration [Unknown]
  - Hyperparathyroidism [Unknown]
  - Cerebral atrophy [Unknown]
  - Sepsis [Unknown]
  - Thrombocytopenia [Unknown]
  - Hyperkalaemia [Unknown]
  - Hypercalcaemia [Unknown]
  - Urinary tract infection [Unknown]
  - Confusional state [Unknown]
  - Mood swings [Unknown]
  - Rash [Unknown]
  - Social avoidant behaviour [Unknown]
  - Escherichia infection [Unknown]
  - Urinary incontinence [Unknown]
